FAERS Safety Report 9021534 (Version 2)
Quarter: 2013Q4

REPORT INFORMATION
  Report Type: Spontaneous
  Country: CA (occurrence: CA)
  Receive Date: 20130119
  Receipt Date: 20131217
  Transmission Date: 20140711
  Serious: Yes (Other)
  Sender: FDA-Public Use
  Company Number: CA-AMGEN-CANSP2013002122

PATIENT
  Age: 76 Year
  Sex: Female
  Weight: 43.18 kg

DRUGS (2)
  1. PROLIA [Suspect]
     Indication: OSTEOPOROSIS
     Dosage: 60 MG, UNK
     Dates: start: 20110723
  2. HYDROCHLORZIDE [Concomitant]
     Indication: HYPERTENSION

REACTIONS (1)
  - Biopsy breast abnormal [Unknown]
